FAERS Safety Report 7819377-X (Version None)
Quarter: 2011Q4

REPORT INFORMATION
  Report Type: 
  Country: None (occurrence: None)
  Receive Date: 20111018
  Receipt Date: 20110105
  Transmission Date: 20120403
  Serious: No
  Sender: FDA-Public Use
  Company Number: US-ASTRAZENECA-2010SE55581

PATIENT
  Age: 50 Year
  Sex: Male

DRUGS (7)
  1. SYMBICORT [Suspect]
     Dosage: 160/4.5 MCG
     Route: 055
  2. KEPPRA [Concomitant]
  3. CARBATROL [Concomitant]
  4. PHENOBARBITAL TAB [Concomitant]
  5. SYMBICORT [Suspect]
     Indication: ASTHMA
     Dosage: 80 MCG TWO TIMES A DAY
     Route: 055
  6. SYMBICORT [Suspect]
     Dosage: 1 PUFF QD
     Route: 055
  7. NASONEX [Concomitant]

REACTIONS (2)
  - ASTHMA [None]
  - DRUG DOSE OMISSION [None]
